FAERS Safety Report 9464065 (Version 3)
Quarter: 2015Q4

REPORT INFORMATION
  Report Type: Report from Study
  Country: US (occurrence: US)
  Receive Date: 20130819
  Receipt Date: 20151009
  Transmission Date: 20160305
  Serious: Yes (Other)
  Sender: FDA-Public Use
  Company Number: US-SANOFI-AVENTIS-2013SA070590

PATIENT
  Age: 67 Year
  Sex: Female
  Weight: 65 kg

DRUGS (9)
  1. NEURONTIN [Concomitant]
     Active Substance: GABAPENTIN
  2. VITAMIN D3 [Concomitant]
     Active Substance: CHOLECALCIFEROL
  3. AUBAGIO [Suspect]
     Active Substance: TERIFLUNOMIDE
     Indication: MULTIPLE SCLEROSIS
     Route: 048
     Dates: start: 20130620, end: 20130705
  4. POTASSIUM [Concomitant]
     Active Substance: POTASSIUM
     Indication: MUSCLE SPASMS
  5. CODEINE [Concomitant]
     Active Substance: CODEINE
  6. AUBAGIO [Suspect]
     Active Substance: TERIFLUNOMIDE
     Indication: MULTIPLE SCLEROSIS
     Route: 048
     Dates: start: 20130715
  7. TYLENOL [Concomitant]
     Active Substance: ACETAMINOPHEN
     Indication: BACK PAIN
  8. PRAVASTATIN [Concomitant]
     Active Substance: PRAVASTATIN\PRAVASTATIN SODIUM
  9. PROVIGIL [Concomitant]
     Active Substance: MODAFINIL
     Indication: FATIGUE

REACTIONS (10)
  - Gait disturbance [Recovering/Resolving]
  - Fatigue [Not Recovered/Not Resolved]
  - Dysphonia [Recovered/Resolved]
  - Multiple sclerosis relapse [Recovered/Resolved]
  - Heart rate increased [Recovered/Resolved]
  - Diarrhoea [Recovered/Resolved]
  - Hypoaesthesia [Recovered/Resolved]
  - Dizziness [Not Recovered/Not Resolved]
  - Oropharyngeal pain [Not Recovered/Not Resolved]
  - Gingival pain [Not Recovered/Not Resolved]

NARRATIVE: CASE EVENT DATE: 20130703
